FAERS Safety Report 9814247 (Version 2)
Quarter: 2014Q2

REPORT INFORMATION
  Report Type: Spontaneous
  Country: US (occurrence: US)
  Receive Date: 20140113
  Receipt Date: 20140408
  Transmission Date: 20141212
  Serious: Yes (Other)
  Sender: FDA-Public Use
  Company Number: US-ASTELLAS-2013US013184

PATIENT
  Age: 67 Year
  Sex: Female

DRUGS (4)
  1. MYRBETRIQ [Suspect]
     Indication: PRODUCT USED FOR UNKNOWN INDICATION
     Dosage: 25 MG, UID/QD
     Route: 048
     Dates: start: 201311, end: 201402
  2. MYRBETRIQ [Suspect]
     Dosage: 50 MG, UNKNOWN/D
     Route: 048
     Dates: start: 201402, end: 201402
  3. LISIPROL [Suspect]
     Indication: PRODUCT USED FOR UNKNOWN INDICATION
     Dosage: UNK
     Route: 065
     Dates: start: 20131123, end: 20131130
  4. METHIMAZOLE [Concomitant]
     Indication: THYROID DISORDER
     Dosage: UNK
     Route: 065

REACTIONS (4)
  - Drug ineffective [Unknown]
  - Blood pressure increased [Unknown]
  - Insomnia [Recovered/Resolved]
  - Anxiety [Unknown]
